FAERS Safety Report 8581451-0 (Version None)
Quarter: 2012Q3

REPORT INFORMATION
  Report Type: 
  Country: None (occurrence: None)
  Receive Date: 20120809
  Receipt Date: 20120801
  Transmission Date: 20120928
  Serious: Yes (Hospitalization)
  Sender: FDA-Public Use
  Company Number: CA-BRISTOL-MYERS SQUIBB COMPANY-16794232

PATIENT
  Age: 58 Year
  Sex: Female

DRUGS (4)
  1. IMODIUM [Concomitant]
  2. FLUOROURACIL [Concomitant]
  3. FLUOROURACIL [Suspect]
     Indication: COLORECTAL CANCER
     Dosage: MOST RECENT DOSE ON 04APR12  INTERRUPTED  RESUMED ON 11JUL12, RECENT INF 25JUL12 DOASGE:399 MG
     Route: 042
     Dates: start: 20120125
  4. SOLU-MEDROL [Concomitant]
     Indication: PREMEDICATION

REACTIONS (6)
  - ORAL PAIN [None]
  - FATIGUE [None]
  - NEOPLASM [None]
  - CONSTIPATION [None]
  - GLOSSITIS [None]
  - DIARRHOEA [None]
